FAERS Safety Report 9904485 (Version 2)
Quarter: 2014Q1

REPORT INFORMATION
  Report Type: Spontaneous
  Country: IT (occurrence: IT)
  Receive Date: 20140218
  Receipt Date: 20140328
  Transmission Date: 20141002
  Serious: Yes (Death)
  Sender: FDA-Public Use
  Company Number: IT-JNJFOC-20140208363

PATIENT
  Age: 76 Year
  Sex: Male
  Weight: 71 kg

DRUGS (2)
  1. REMICADE [Suspect]
     Indication: PSORIASIS
     Dosage: APPROXIMATE NUMBER OF INFUSIONS PATIENT RECEIVED WERE 6 PER YEAR.
     Route: 042
     Dates: start: 20130308, end: 20130308
  2. REMICADE [Suspect]
     Indication: PSORIASIS
     Dosage: 100 MG POWDER FOR INFUSION
     Route: 042
     Dates: start: 20050321

REACTIONS (1)
  - Pancreatic neuroendocrine tumour [Fatal]
